FAERS Safety Report 8392755-9 (Version None)
Quarter: 2012Q2

REPORT INFORMATION
  Report Type: 
  Country: None (occurrence: None)
  Receive Date: 20120529
  Receipt Date: 20111025
  Transmission Date: 20120825
  Serious: No
  Sender: FDA-Public Use
  Company Number: US-MYLANLABS-2011S1017574

PATIENT
  Age: 37 Year
  Sex: Female

DRUGS (10)
  1. AMITRIPTYLINE HCL [Suspect]
     Indication: MIGRAINE
     Route: 048
     Dates: start: 20110201, end: 20110801
  2. SINGULAIR [Concomitant]
     Indication: SEASONAL ALLERGY
  3. MAGNESIUM HYDROXIDE TAB [Concomitant]
  4. BENADRYL [Concomitant]
  5. ROPINIROLE [Concomitant]
     Indication: RESTLESS LEGS SYNDROME
  6. LABETALOL HCL [Concomitant]
     Indication: MIGRAINE
     Route: 048
     Dates: start: 20110201
  7. ASTELIN [Concomitant]
  8. AMITRIPTYLINE HCL [Suspect]
     Route: 048
     Dates: start: 20110815, end: 20110801
  9. NEXIUM [Concomitant]
     Indication: GASTRITIS
  10. ZYRTEC [Concomitant]

REACTIONS (2)
  - ANXIETY [None]
  - FEELING ABNORMAL [None]
